FAERS Safety Report 6356234-2 (Version None)
Quarter: 2009Q3

REPORT INFORMATION
  Report Type: 
  Country: None (occurrence: None)
  Receive Date: 20090911
  Receipt Date: 20090911
  Transmission Date: 20100115
  Serious: Yes (Life-Threatening, Hospitalization, Disabling, Other)
  Sender: FDA-Public Use
  Company Number: None

PATIENT
  Age: 23 Year
  Sex: Male
  Weight: 69.4003 kg

DRUGS (1)
  1. IBUPROFEN TABLETS [Suspect]
     Indication: PAIN
     Dosage: 800MG 2-3 TIMES A DAY PO
     Route: 048
     Dates: start: 20090331, end: 20090422

REACTIONS (1)
  - ANAEMIA HAEMOLYTIC AUTOIMMUNE [None]
